FAERS Safety Report 18551109 (Version 1)
Quarter: 2020Q4

REPORT INFORMATION
  Report Type: Spontaneous
  Country: SE (occurrence: SE)
  Receive Date: 20201126
  Receipt Date: 20201126
  Transmission Date: 20210114
  Serious: Yes (Other)
  Sender: FDA-Public Use
  Company Number: NVSC2020SE310014

PATIENT
  Age: 75 Year
  Sex: Male

DRUGS (6)
  1. ZINC. [Concomitant]
     Active Substance: ZINC
     Indication: PRODUCT USED FOR UNKNOWN INDICATION
     Dosage: UNK
     Route: 065
  2. TROMBYL [Concomitant]
     Active Substance: ASPIRIN
     Indication: PRODUCT USED FOR UNKNOWN INDICATION
     Dosage: 1 DF, QD (ONE IN THE MORNING)
     Route: 065
  3. ATORVASTATIN [Suspect]
     Active Substance: ATORVASTATIN
     Indication: PRODUCT USED FOR UNKNOWN INDICATION
     Dosage: 1 DF, QD (1 DOSAGE FORM, QD)
     Route: 065
     Dates: start: 2015
  4. AMLODIPIN [Concomitant]
     Active Substance: AMLODIPINE BESYLATE
     Indication: HYPERTENSION
     Dosage: UNK UNK, QD (1/2 TABLET QD)
     Route: 065
     Dates: start: 2015
  5. ATORVASTATIN MYLAN [Suspect]
     Active Substance: ATORVASTATIN
     Indication: CAROTID ARTERY STENOSIS
     Dosage: 40 MG, QD
     Route: 065
     Dates: end: 20201107
  6. TRIATEC (CODEINE PHOSPHATE/PARACETAMOL) [Concomitant]
     Active Substance: ACETAMINOPHEN\CODEINE PHOSPHATE
     Indication: PRODUCT USED FOR UNKNOWN INDICATION
     Dosage: UNK NG, QD (UNK UNK, BID)
     Route: 065
     Dates: start: 2004

REACTIONS (7)
  - Dysarthria [Not Recovered/Not Resolved]
  - Cerebrovascular accident [Unknown]
  - Mobility decreased [Recovered/Resolved]
  - Tongue movement disturbance [Unknown]
  - Product dose omission issue [Unknown]
  - Dysphagia [Unknown]
  - Amyotrophic lateral sclerosis [Unknown]

NARRATIVE: CASE EVENT DATE: 20201103
